FAERS Safety Report 14106192 (Version 2)
Quarter: 2018Q1

REPORT INFORMATION
  Report Type: Spontaneous
  Country: US (occurrence: US)
  Receive Date: 20171019
  Receipt Date: 20180307
  Transmission Date: 20180508
  Serious: No
  Sender: FDA-Public Use
  Company Number: US-009507513-1710USA002035

PATIENT
  Age: 27 Year
  Sex: Female
  Weight: 9.07 kg

DRUGS (1)
  1. NEXPLANON [Suspect]
     Active Substance: ETONOGESTREL
     Dosage: 1 IMPLANT. LEFT ARM (NON-DOMINAT)
     Route: 059
     Dates: start: 2014, end: 20160621

REACTIONS (7)
  - Mood swings [Unknown]
  - Headache [Unknown]
  - Pain in extremity [Unknown]
  - Device dislocation [Recovered/Resolved]
  - Implant site pain [Unknown]
  - Complication of device removal [Recovered/Resolved]
  - Complication associated with device [Recovered/Resolved]

NARRATIVE: CASE EVENT DATE: 20160621
